FAERS Safety Report 7706818-1 (Version None)
Quarter: 2011Q3

REPORT INFORMATION
  Report Type: 
  Country: None (occurrence: None)
  Receive Date: 20110824
  Receipt Date: 20110815
  Transmission Date: 20111222
  Serious: Yes (Hospitalization)
  Sender: FDA-Public Use
  Company Number: IT-TEVA-297213ISR

PATIENT
  Age: 75 Year
  Sex: Male

DRUGS (5)
  1. TICLOPIDINE HCL [Concomitant]
  2. CIMETIDINE [Interacting]
     Indication: GASTRODUODENAL ULCER
  3. CITALOPRAM HYDROBROMIDE [Suspect]
     Dosage: 20 MILLIGRAM;
  4. QUETIAPINE [Concomitant]
  5. DONEPEZIL HCL [Concomitant]

REACTIONS (2)
  - DRUG INTERACTION [None]
  - SEROTONIN SYNDROME [None]
